FAERS Safety Report 9256506 (Version 2)
Quarter: 2013Q2

REPORT INFORMATION
  Report Type: Spontaneous
  Country: US (occurrence: US)
  Receive Date: 20130426
  Receipt Date: 20130624
  Transmission Date: 20140414
  Serious: Yes (Hospitalization)
  Sender: FDA-Public Use
  Company Number: US-BIOGENIDEC-2013BI036032

PATIENT
  Age: 40 Year
  Sex: Female

DRUGS (8)
  1. TYSABRI [Suspect]
     Indication: MULTIPLE SCLEROSIS
     Route: 042
     Dates: start: 20061228, end: 20130322
  2. AVONEX [Concomitant]
     Indication: MULTIPLE SCLEROSIS
     Route: 030
     Dates: start: 20010929
  3. BACLOFEN [Concomitant]
     Indication: MUSCLE SPASTICITY
  4. DIHYDROERGOTAMINE [Concomitant]
     Indication: MIGRAINE
  5. DOCUSATE SODIUM [Concomitant]
     Indication: CONSTIPATION
  6. METHADONE [Concomitant]
     Indication: PAIN
  7. NORCO [Concomitant]
     Indication: PAIN
  8. NORTRIPTYLINE [Concomitant]
     Indication: DEPRESSION

REACTIONS (2)
  - Altered state of consciousness [Recovered/Resolved]
  - Drug specific antibody present [Unknown]
